FAERS Safety Report 5456282-0 (Version None)
Quarter: 2007Q3

REPORT INFORMATION
  Report Type: 
  Country: None (occurrence: None)
  Receive Date: 20070918
  Receipt Date: 20070330
  Transmission Date: 20080115
  Serious: Yes (Other)
  Sender: FDA-Public Use
  Company Number: US-ASTRAZENECA-2006UW24474

PATIENT
  Sex: Female
  Weight: 90.5 kg

DRUGS (7)
  1. SEROQUEL [Suspect]
     Indication: BIPOLAR DISORDER
     Route: 048
     Dates: end: 20060101
  2. ABILIFY [Concomitant]
     Dates: start: 20060301
  3. CLOZARIL [Concomitant]
     Dates: start: 19980601
  4. RISPERDAL [Concomitant]
  5. ZYPREXA [Concomitant]
  6. ZOLOFT [Concomitant]
  7. TRAZODONE HCL [Concomitant]

REACTIONS (2)
  - DIABETES MELLITUS [None]
  - TARDIVE DYSKINESIA [None]
